FAERS Safety Report 8549158-3 (Version None)
Quarter: 2012Q3

REPORT INFORMATION
  Report Type: 
  Country: None (occurrence: None)
  Receive Date: 20120730
  Receipt Date: 20120725
  Transmission Date: 20120928
  Serious: Yes (Disabling, Other)
  Sender: FDA-Public Use
  Company Number: US-PFIZER INC-2012180601

PATIENT
  Sex: Female
  Weight: 146.94 kg

DRUGS (11)
  1. LEVOTHYROXINE [Concomitant]
     Dosage: 1.75 MG, 1X/DAY
  2. NOVOLOG [Concomitant]
     Dosage: 10 UNITS, 1X/DAY
  3. LANTUS [Concomitant]
     Dosage: 60 UNITS, 1X/DAY
  4. FUROSEMIDE [Concomitant]
     Dosage: 40 MG, 1X/DAY
  5. GLYBURIDE [Concomitant]
     Dosage: 4 MG, 2X/DAY
  6. METOPROLOL [Concomitant]
     Dosage: 50 MG, 2X/DAY
  7. LIPITOR [Suspect]
     Indication: BLOOD CHOLESTEROL INCREASED
     Dosage: 20 MG, 1X/DAY
     Route: 048
     Dates: start: 20000101
  8. LOSARTAN [Concomitant]
     Dosage: 50 MG, 1X/DAY
  9. SPIRIVA [Concomitant]
     Dosage: UNK
  10. METFORMIN [Concomitant]
     Dosage: 1000 MG, 2X/DAY
  11. ASPIRIN [Concomitant]
     Dosage: UNK

REACTIONS (6)
  - DIPLOPIA [None]
  - VISION BLURRED [None]
  - VISUAL IMPAIRMENT [None]
  - NEOPLASM [None]
  - BLOOD PRESSURE ABNORMAL [None]
  - PAIN [None]
